FAERS Safety Report 9003218 (Version 1)
Quarter: 2013Q1

REPORT INFORMATION
  Report Type: Spontaneous
  Country: US (occurrence: US)
  Receive Date: 20130108
  Receipt Date: 20130108
  Transmission Date: 20140127
  Serious: No
  Sender: FDA-Public Use
  Company Number: US-JNJFOC-20121213840

PATIENT
  Age: 10 Decade
  Sex: Male

DRUGS (6)
  1. DURAGESIC [Suspect]
     Indication: SPINAL COLUMN STENOSIS
     Route: 062
     Dates: start: 20121203
  2. DURAGESIC [Suspect]
     Indication: SPINAL COLUMN STENOSIS
     Route: 062
     Dates: start: 201204, end: 20121203
  3. DURAGESIC [Suspect]
     Indication: SPINAL COLUMN STENOSIS
     Route: 062
     Dates: start: 201011, end: 201011
  4. DURAGESIC [Suspect]
     Indication: SPINAL COLUMN STENOSIS
     Dosage: ONE 25 UG/HR AND ONE 12.5 UG/HR PATCHES
     Route: 062
     Dates: start: 201011, end: 201011
  5. DURAGESIC [Suspect]
     Indication: SPINAL COLUMN STENOSIS
     Route: 062
     Dates: start: 201011, end: 201204
  6. HYDROCODONE/ACETAMINOPHEN [Concomitant]
     Indication: BREAKTHROUGH PAIN
     Dosage: 5/25 MG
     Route: 048
     Dates: end: 2012

REACTIONS (8)
  - Drug ineffective [Recovered/Resolved]
  - Nausea [Recovered/Resolved]
  - Abnormal dreams [Recovered/Resolved]
  - Heart rate decreased [Recovered/Resolved]
  - Lethargy [Recovered/Resolved]
  - Pain [Recovered/Resolved]
  - Decreased appetite [Unknown]
  - Drug prescribing error [Unknown]
